FAERS Safety Report 4674459-9 (Version None)
Quarter: 2005Q2

REPORT INFORMATION
  Report Type: 
  Country: None (occurrence: None)
  Receive Date: 20050524
  Receipt Date: 20050506
  Transmission Date: 20051028
  Serious: Yes (Other)
  Sender: FDA-Public Use
  Company Number: USA050597514

PATIENT
  Age: 69 Year
  Sex: Female

DRUGS (1)
  1. PROZAC [Suspect]
     Dosage: 20 MG
     Dates: start: 20000730, end: 20010824

REACTIONS (6)
  - BACK PAIN [None]
  - BONE PAIN [None]
  - DEPRESSED LEVEL OF CONSCIOUSNESS [None]
  - DRUG INEFFECTIVE [None]
  - FEELING OF DESPAIR [None]
  - IRRITABILITY [None]
